FAERS Safety Report 8013608-1 (Version None)
Quarter: 2011Q4

REPORT INFORMATION
  Report Type: 
  Country: None (occurrence: None)
  Receive Date: 20111229
  Receipt Date: 20111219
  Transmission Date: 20120403
  Serious: Yes (Hospitalization, Other)
  Sender: FDA-Public Use
  Company Number: GB-UCBSA-047883

PATIENT
  Age: 32 Year
  Sex: Male
  Weight: 61 kg

DRUGS (16)
  1. DOCUSATE [Concomitant]
  2. MIDAZOLAM [Concomitant]
  3. PABRINEX [Concomitant]
  4. SENNA [Concomitant]
  5. VANCOMYCIN HYCHLORIDE [Suspect]
     Route: 042
     Dates: start: 20111101, end: 20111107
  6. FUROSEMIDE [Concomitant]
  7. OMEPRAZOLE [Concomitant]
  8. PROPOFOL [Concomitant]
  9. VALPROATE SODIUM [Suspect]
     Route: 042
     Dates: start: 20111031, end: 20111103
  10. ALFENTANIL [Concomitant]
  11. CHLORHEXIDINE GLUCONATE [Concomitant]
  12. METOCLOPRAMIDE [Concomitant]
  13. MAGNESIUM SULFATE [Concomitant]
  14. PRONTODERM [Concomitant]
  15. LEVETIRACETAM [Suspect]
     Indication: CONVULSION
     Dates: start: 20111103, end: 20111103
  16. MAGNESIUM [Concomitant]

REACTIONS (4)
  - DRUG RASH WITH EOSINOPHILIA AND SYSTEMIC SYMPTOMS [None]
  - HEPATITIS [None]
  - SKIN REACTION [None]
  - TUBULOINTERSTITIAL NEPHRITIS [None]
